FAERS Safety Report 9432212 (Version 1)
Quarter: 2013Q3

REPORT INFORMATION
  Report Type: Report from Study
  Country: BE (occurrence: BE)
  Receive Date: 20130731
  Receipt Date: 20130731
  Transmission Date: 20140515
  Serious: Yes (Hospitalization)
  Sender: FDA-Public Use
  Company Number: PHHY2013BE078415

PATIENT
  Sex: 0

DRUGS (18)
  1. MYCOPHENOLIC ACID [Suspect]
     Indication: STEM CELL TRANSPLANT
     Dosage: 32 MG/KG, QD
     Route: 048
     Dates: start: 20120424, end: 20120522
  2. SANDIMMUN [Suspect]
     Indication: STEM CELL TRANSPLANT
     Dosage: UNK
     Route: 048
     Dates: start: 20120421, end: 20121204
  3. ACYCLOVIR [Concomitant]
     Indication: PROPHYLAXIS
     Dosage: 400 MG, BID
     Route: 048
     Dates: start: 20120427, end: 20130123
  4. MYCOPHENOLATE [Concomitant]
     Indication: PROPHYLAXIS
     Dosage: 1 G, BID
     Route: 048
     Dates: start: 20121008, end: 20130103
  5. MYCOPHENOLATE [Concomitant]
     Dosage: 1500 MG, QD
     Route: 048
     Dates: start: 20130104, end: 20130111
  6. MYCOPHENOLATE [Concomitant]
     Dosage: 100 MG, QD
     Route: 048
     Dates: start: 20130112, end: 20130122
  7. ENTEROCORT [Concomitant]
     Indication: PROPHYLAXIS
     Dosage: 9 MG, UNK
     Route: 048
     Dates: start: 20121219, end: 20130122
  8. ENTEROCORT [Concomitant]
     Dosage: 6 MG, UNK
     Route: 048
     Dates: start: 20130123, end: 20130206
  9. VANCOCIN [Concomitant]
     Indication: GASTROINTESTINAL INFECTION
     Dosage: 125 MG, QID
     Route: 048
     Dates: start: 20121229, end: 20130114
  10. PANTOPRAZOLE [Concomitant]
     Indication: DYSPEPSIA
     Dosage: 40 MG, BID
     Route: 048
     Dates: start: 20121229, end: 20130111
  11. PANTOPRAZOLE [Concomitant]
     Dosage: 20 MG, PRN
     Route: 048
     Dates: start: 20130112, end: 20130206
  12. METHYLPREDNISOLONE [Concomitant]
     Indication: PROPHYLAXIS
     Dosage: 4 MG, QD
     Route: 048
     Dates: start: 20130104, end: 20130111
  13. MEROPENEM [Concomitant]
     Indication: PYREXIA
     Dosage: 4 G, QD
     Route: 042
     Dates: start: 20130114, end: 20130123
  14. VANCOMYCIN [Concomitant]
     Dosage: 125 MG, QID
     Route: 048
     Dates: start: 20130114, end: 20130201
  15. PERFUSALGAN [Concomitant]
     Indication: PYREXIA
     Dosage: 4 G, QD
     Route: 042
     Dates: start: 20130114, end: 20130116
  16. CIPROFLOXACINE BEXAL [Concomitant]
     Indication: PYREXIA
     Dosage: 500 MG, BID
     Route: 048
     Dates: start: 20130116, end: 20130117
  17. AMOXICILLINE ARROW [Concomitant]
     Indication: PROPHYLAXIS
     Dosage: 4 G, QD
     Route: 048
     Dates: start: 20130123, end: 20130201
  18. IMMUNGLOBULIN [Concomitant]
     Indication: PROPHYLAXIS
     Dosage: 20 G, UNK
     Route: 042
     Dates: start: 20130211, end: 20130211

REACTIONS (1)
  - Crohn^s disease [Recovered/Resolved]
